FAERS Safety Report 11729356 (Version 1)
Quarter: 2015Q4

REPORT INFORMATION
  Report Type: Spontaneous
  Country: FR (occurrence: FR)
  Receive Date: 20151112
  Receipt Date: 20151112
  Transmission Date: 20160304
  Serious: Yes (Hospitalization)
  Sender: FDA-Public Use
  Company Number: FR-BAYER-2015-458904

PATIENT
  Age: 59 Year
  Sex: Female

DRUGS (1)
  1. IZILOX [Suspect]
     Active Substance: MOXIFLOXACIN HYDROCHLORIDE
     Indication: SINUSITIS
     Dosage: 400 MG, QD
     Route: 048
     Dates: start: 20150724, end: 20150730

REACTIONS (3)
  - Uveitis [Recovered/Resolved with Sequelae]
  - Eye pain [Recovered/Resolved]
  - Ocular ischaemic syndrome [Recovered/Resolved with Sequelae]

NARRATIVE: CASE EVENT DATE: 20150807
